FAERS Safety Report 15339950 (Version 1)
Quarter: 2018Q3

REPORT INFORMATION
  Report Type: Spontaneous
  Country: UY (occurrence: UY)
  Receive Date: 20180831
  Receipt Date: 20180831
  Transmission Date: 20181010
  Serious: Yes (Other)
  Sender: FDA-Public Use
  Company Number: UY-BAYER-2018-161922

PATIENT
  Sex: Female

DRUGS (1)
  1. JAYDESS [Suspect]
     Active Substance: LEVONORGESTREL
     Dosage: 14 MCG/24HR, CONT
     Route: 015
     Dates: start: 20170203

REACTIONS (16)
  - Cortisol increased [None]
  - Insomnia [None]
  - Vaginal discharge [None]
  - Hyperinsulinism [None]
  - Hormone level abnormal [None]
  - Inadequate lubrication [None]
  - Alopecia [None]
  - Weight increased [None]
  - Menorrhagia [None]
  - Libido decreased [None]
  - Fatigue [None]
  - Mood altered [None]
  - Anxiety [None]
  - Thirst [None]
  - Dandruff [None]
  - Urticaria [None]
